FAERS Safety Report 9360597 (Version 1)
Quarter: 2013Q2

REPORT INFORMATION
  Report Type: Spontaneous
  Country: CA (occurrence: CA)
  Receive Date: 20130621
  Receipt Date: 20130621
  Transmission Date: 20140414
  Serious: Yes (Death, Hospitalization)
  Sender: FDA-Public Use
  Company Number: CA-ROCHE-1239071

PATIENT
  Age: 75 Year
  Sex: Female

DRUGS (7)
  1. XELODA [Suspect]
     Indication: PRODUCT USED FOR UNKNOWN INDICATION
     Route: 065
  2. TYKERB [Suspect]
     Indication: PRODUCT USED FOR UNKNOWN INDICATION
     Route: 048
  3. TYKERB [Suspect]
     Route: 065
  4. ADALAT XL [Concomitant]
     Route: 065
  5. BONEFOS [Concomitant]
     Route: 065
  6. COLACE [Concomitant]
     Route: 065
  7. RAMIPRIL [Concomitant]
     Route: 065

REACTIONS (11)
  - Blister [Fatal]
  - Brain neoplasm [Fatal]
  - Cardiac flutter [Fatal]
  - Disease progression [Fatal]
  - Dyspnoea [Fatal]
  - Erythema [Fatal]
  - Localised infection [Fatal]
  - Malignant neoplasm progression [Fatal]
  - Onychoclasis [Fatal]
  - Pain in extremity [Fatal]
  - Palpitations [Fatal]
